FAERS Safety Report 6686242-3 (Version None)
Quarter: 2010Q2

REPORT INFORMATION
  Report Type: 
  Country: None (occurrence: None)
  Receive Date: 20100414
  Receipt Date: 20100329
  Transmission Date: 20101027
  Serious: Yes (Other)
  Sender: FDA-Public Use
  Company Number: 09-000102

PATIENT
  Age: 49 Year
  Sex: Female
  Weight: 60.8 kg

DRUGS (5)
  1. LOESTRIN 24 FE [Suspect]
     Indication: CONTRACEPTION
     Dosage: 20/1000 UG, QD, ORAL
     Route: 048
     Dates: start: 20081214, end: 20100301
  2. LOESTRIN 24 FE [Suspect]
     Indication: MENSTRUAL CYCLE MANAGEMENT
     Dosage: 20/1000 UG, QD, ORAL
     Route: 048
     Dates: start: 20081214, end: 20100301
  3. ZOLPIDEM [Concomitant]
  4. DIAZEPAM [Concomitant]
  5. VIVELLE-DOT [Concomitant]

REACTIONS (12)
  - ANXIETY [None]
  - BREAST TENDERNESS [None]
  - DEPRESSION [None]
  - INAPPROPRIATE SCHEDULE OF DRUG ADMINISTRATION [None]
  - INCREASED APPETITE [None]
  - METRORRHAGIA [None]
  - SELF-INJURIOUS IDEATION [None]
  - STRESS [None]
  - SUICIDAL IDEATION [None]
  - WEIGHT DECREASED [None]
  - WEIGHT INCREASED [None]
  - WITHDRAWAL BLEED [None]
